FAERS Safety Report 13464473 (Version 1)
Quarter: 2017Q2

REPORT INFORMATION
  Report Type: Spontaneous
  Country: US (occurrence: US)
  Receive Date: 20170420
  Receipt Date: 20170420
  Transmission Date: 20170830
  Serious: Yes (Other)
  Sender: FDA-Public Use
  Company Number: US-ROCHE-722616

PATIENT
  Age: 23 Year
  Sex: Male
  Weight: 79.4 kg

DRUGS (3)
  1. ACCUTANE [Suspect]
     Active Substance: ISOTRETINOIN
     Route: 048
     Dates: start: 20050725, end: 200512
  2. SOTRET [Suspect]
     Active Substance: ISOTRETINOIN
     Indication: ACNE
     Dosage: STOPPED IN 2006
     Route: 048
  3. ACCUTANE [Suspect]
     Active Substance: ISOTRETINOIN
     Indication: ACNE
     Route: 048
     Dates: start: 20050408, end: 200506

REACTIONS (4)
  - Colitis ulcerative [Unknown]
  - Blood triglycerides increased [Unknown]
  - Gastrointestinal injury [Unknown]
  - Lip dry [Unknown]

NARRATIVE: CASE EVENT DATE: 20050506
